FAERS Safety Report 4602689-0 (Version None)
Quarter: 2005Q1

REPORT INFORMATION
  Report Type: 
  Country: None (occurrence: None)
  Receive Date: 20050307
  Receipt Date: 20050222
  Transmission Date: 20050727
  Serious: No
  Sender: FDA-Public Use
  Company Number: 2004097481

PATIENT
  Age: 67 Year
  Sex: Male

DRUGS (8)
  1. MICRONASE [Suspect]
     Indication: DIABETES MELLITUS
     Dosage: 15 MG (15 MG, 1 IN 1 D), ORAL
     Route: 048
     Dates: start: 20030919, end: 20041116
  2. BLINDED THERAPY (BLINDED THERAPY [Suspect]
     Indication: DIABETES MELLITUS
     Dosage: ORAL
     Route: 048
     Dates: start: 20040318, end: 20041116
  3. SIMVASTATIN [Concomitant]
  4. QUINAPRIL HCL [Concomitant]
  5. AMLODIPINE BESYLATE [Concomitant]
  6. CETIRIZINE HCL [Concomitant]
  7. CANDESARTAN CILEXETIL (CANDESARTAN CILEXETIL) [Concomitant]
  8. FEXOFENADINE HYDROCHLORIDE [Concomitant]

REACTIONS (25)
  - ACUTE CORONARY SYNDROME [None]
  - ACUTE MYOCARDIAL INFARCTION [None]
  - ANGIOPATHY [None]
  - AORTIC VALVE INCOMPETENCE [None]
  - AORTIC VALVE SCLEROSIS [None]
  - BLOOD PRESSURE INCREASED [None]
  - CARDIAC FAILURE CONGESTIVE [None]
  - CARDIOMEGALY [None]
  - CAROTID ARTERY STENOSIS [None]
  - CORONARY ARTERY DISEASE [None]
  - DIASTOLIC DYSFUNCTION [None]
  - ELECTROCARDIOGRAM ST SEGMENT ABNORMAL [None]
  - IMPAIRED HEALING [None]
  - LUNG DISORDER [None]
  - MITRAL VALVE CALCIFICATION [None]
  - MITRAL VALVE INCOMPETENCE [None]
  - OXYGEN SATURATION DECREASED [None]
  - PERICARDIAL EFFUSION [None]
  - PULMONARY OEDEMA [None]
  - RENAL FAILURE ACUTE [None]
  - RESPIRATORY RATE INCREASED [None]
  - RHONCHI [None]
  - TREATMENT NONCOMPLIANCE [None]
  - TRICUSPID VALVE INCOMPETENCE [None]
  - WOUND DEHISCENCE [None]
